FAERS Safety Report 13594440 (Version 3)
Quarter: 2017Q3

REPORT INFORMATION
  Report Type: Spontaneous
  Country: JP (occurrence: JP)
  Receive Date: 20170530
  Receipt Date: 20170705
  Transmission Date: 20171127
  Serious: Yes (Death)
  Sender: FDA-Public Use
  Company Number: JP-BAUSCH-BL-2017-017703

PATIENT
  Age: 78 Year
  Sex: Male

DRUGS (6)
  1. SODIUM PICOSULFATE HYDRATE [Concomitant]
     Active Substance: SODIUM PICOSULFATE
     Indication: PRODUCT USED FOR UNKNOWN INDICATION
     Dosage: 300 CC
     Dates: start: 20170507, end: 20170507
  2. MOVIPREP [Suspect]
     Active Substance: ASCORBIC ACID\POLYETHYLENE GLYCOL 3350\POTASSIUM CHLORIDE\SODIUM ASCORBATE\SODIUM CHLORIDE\SODIUM SULFATE
     Indication: BOWEL PREPARATION
     Route: 048
     Dates: start: 20170508, end: 20170508
  3. TAKECAB [Concomitant]
     Active Substance: VONOPRAZAN FUMURATE
     Indication: PRODUCT USED FOR UNKNOWN INDICATION
  4. MAGMITT [Concomitant]
     Active Substance: MAGNESIUM OXIDE
     Indication: PRODUCT USED FOR UNKNOWN INDICATION
  5. SENNOSIDE [Concomitant]
     Active Substance: SENNOSIDES
     Indication: PRODUCT USED FOR UNKNOWN INDICATION
  6. ULCERLMIN [Concomitant]
     Active Substance: SUCRALFATE
     Indication: PRODUCT USED FOR UNKNOWN INDICATION

REACTIONS (12)
  - Loss of consciousness [Fatal]
  - Blood pressure inadequately controlled [Fatal]
  - Septic shock [Fatal]
  - Blood pressure immeasurable [Fatal]
  - Gastrointestinal necrosis [Fatal]
  - Gastrointestinal necrosis [Fatal]
  - Renal failure [Fatal]
  - Colitis ischaemic [Fatal]
  - Gastrointestinal stoma necrosis [Fatal]
  - Pallor [Fatal]
  - Nausea [Fatal]
  - Eye luxation [Fatal]

NARRATIVE: CASE EVENT DATE: 20170508
